FAERS Safety Report 14439892 (Version 1)
Quarter: 2018Q1

REPORT INFORMATION
  Report Type: Spontaneous
  Country: US (occurrence: US)
  Receive Date: 20180125
  Receipt Date: 20180125
  Transmission Date: 20180509
  Serious: No
  Sender: FDA-Public Use
  Company Number: US-ACORDA-ACO_137067_2017

PATIENT
  Sex: Female

DRUGS (1)
  1. TIZANIDINE. [Suspect]
     Active Substance: TIZANIDINE
     Indication: PRODUCT USE IN UNAPPROVED INDICATION
     Dosage: UNK
     Route: 065

REACTIONS (2)
  - Adverse drug reaction [Unknown]
  - Drug effect decreased [Unknown]
